FAERS Safety Report 10157793 (Version 4)
Quarter: 2016Q1

REPORT INFORMATION
  Report Type: Report from Study
  Country: JP (occurrence: JP)
  Receive Date: 20140507
  Receipt Date: 20160311
  Transmission Date: 20160525
  Serious: Yes (Hospitalization)
  Sender: FDA-Public Use
  Company Number: JP-JNJFOC-20140305434

PATIENT
  Age: 71 Year
  Sex: Male
  Weight: 65 kg

DRUGS (55)
  1. LACTEC-D [Concomitant]
     Indication: TRANSFUSION
     Route: 041
     Dates: start: 20140308, end: 20140318
  2. KENEI G (GLYCERIN) [Concomitant]
     Indication: COLONOSCOPY
     Route: 054
     Dates: start: 20140306, end: 20140306
  3. PROGRAF [Suspect]
     Active Substance: TACROLIMUS\TACROLIMUS ANHYDROUS
     Indication: COLITIS ULCERATIVE
     Route: 048
     Dates: start: 20140326, end: 20140328
  4. XYLESTESIN-A [Concomitant]
     Route: 061
     Dates: start: 20131224, end: 20131228
  5. NAFAMOSTAT [Concomitant]
     Active Substance: NAFAMOSTAT
     Indication: ANTICOAGULANT THERAPY
     Route: 041
     Dates: start: 20140310, end: 20140331
  6. LACTEC [Concomitant]
     Active Substance: CALCIUM CHLORIDE ANHYDROUS\POTASSIUM CHLORIDE\SODIUM CHLORIDE\SODIUM LACTATE
     Indication: COLONOSCOPY
     Route: 041
     Dates: start: 20131219, end: 20131219
  7. OPYSTAN [Concomitant]
     Active Substance: MEPERIDINE
     Route: 042
     Dates: start: 20131219, end: 20131219
  8. KENEI G (GLYCERIN) [Concomitant]
     Indication: COLONOSCOPY
     Route: 054
     Dates: start: 20131219, end: 20131219
  9. TAKEPRON [Concomitant]
     Active Substance: LANSOPRAZOLE
     Indication: GASTRITIS PROPHYLAXIS
     Route: 048
     Dates: start: 20120725
  10. BAYASPIRIN [Concomitant]
     Active Substance: ASPIRIN
     Indication: ISCHAEMIC HEART DISEASE PROPHYLAXIS
     Route: 048
     Dates: start: 2001
  11. BFLUID [Concomitant]
     Active Substance: AMINO ACIDS\DEXTROSE\ELECTROLYTES NOS\VITAMINS
     Indication: TRANSFUSION
     Route: 041
     Dates: start: 20140308, end: 20140318
  12. POSTERISAN F [Concomitant]
     Route: 054
     Dates: start: 20140327, end: 20140330
  13. OPYSTAN [Concomitant]
     Active Substance: MEPERIDINE
     Route: 042
     Dates: start: 20140306, end: 20140306
  14. ASVERIN (TIPEPIDINE HIBENZATE) [Concomitant]
     Active Substance: TIPEPIDINE HIBENZATE
     Route: 048
     Dates: start: 20140426, end: 20140429
  15. PROGRAF [Suspect]
     Active Substance: TACROLIMUS\TACROLIMUS ANHYDROUS
     Indication: COLITIS ULCERATIVE
     Route: 048
     Dates: start: 20140401, end: 20140408
  16. TAKEPRON [Concomitant]
     Active Substance: LANSOPRAZOLE
     Indication: GASTRITIS PROPHYLAXIS
     Route: 048
     Dates: end: 20120408
  17. FERRUM [Concomitant]
     Active Substance: FERROUS FUMARATE
     Indication: COLITIS ULCERATIVE
     Route: 048
     Dates: start: 20140312, end: 20140423
  18. POSTERISAN F [Concomitant]
     Route: 054
     Dates: start: 20140331, end: 20140401
  19. LACTEC [Concomitant]
     Active Substance: CALCIUM CHLORIDE ANHYDROUS\POTASSIUM CHLORIDE\SODIUM CHLORIDE\SODIUM LACTATE
     Indication: COLONOSCOPY
     Route: 041
     Dates: start: 20140131, end: 20140131
  20. OPYSTAN [Concomitant]
     Active Substance: MEPERIDINE
     Route: 042
     Dates: start: 20140325, end: 20140325
  21. CIRCANETTEN [Concomitant]
     Active Substance: KERATIN\SENNA LEAF
     Route: 048
     Dates: start: 20140401, end: 20140421
  22. FLOMOX [Concomitant]
     Active Substance: CEFCAPENE PIVOXIL HYDROCHLORIDE HYDRATE
     Route: 048
     Dates: start: 20140423, end: 20140426
  23. LANSOPRAZOLE. [Concomitant]
     Active Substance: LANSOPRAZOLE
     Indication: GASTROINTESTINAL DISORDER THERAPY
     Route: 048
     Dates: start: 20140409
  24. CARBOCISTEINE [Concomitant]
     Active Substance: CARBOCYSTEINE
     Route: 065
     Dates: start: 20140426, end: 20140429
  25. GOLIMUMAB [Suspect]
     Active Substance: GOLIMUMAB
     Indication: COLITIS ULCERATIVE
     Route: 058
     Dates: start: 20140205, end: 20140205
  26. FERRUM [Concomitant]
     Active Substance: FERROUS FUMARATE
     Indication: COLITIS ULCERATIVE
     Route: 048
     Dates: end: 20140107
  27. AMLODIPINE [Concomitant]
     Active Substance: AMLODIPINE BESYLATE
     Indication: HYPERTENSION
     Route: 048
     Dates: start: 20140125
  28. CALBLOCK [Concomitant]
     Active Substance: AZELNIDIPINE
     Route: 048
     Dates: start: 20131225, end: 20131225
  29. NON-PYRINE COLD PREPARATION [Concomitant]
     Active Substance: UNSPECIFIED INGREDIENT
     Indication: NASOPHARYNGITIS
     Route: 048
     Dates: start: 20140308, end: 20140312
  30. POSTERISAN F [Concomitant]
     Route: 054
     Dates: start: 20140314, end: 20140326
  31. BORRAZA-G [Concomitant]
     Active Substance: LIDOCAINE\TRIBENOSIDE
     Route: 054
     Dates: start: 20140401, end: 20140421
  32. INDOMETACIN [Concomitant]
     Active Substance: INDOMETHACIN
     Route: 061
  33. BIO-THREE [Concomitant]
     Active Substance: HERBALS
     Indication: COLITIS ULCERATIVE
     Route: 048
     Dates: start: 20120606
  34. OLMETEC [Concomitant]
     Active Substance: OLMESARTAN MEDOXOMIL
     Indication: HYPERTENSION
     Route: 048
     Dates: start: 20140125
  35. NON-PYRINE COLD PREPARATION [Concomitant]
     Active Substance: UNSPECIFIED INGREDIENT
     Indication: NASOPHARYNGITIS
     Route: 048
     Dates: start: 20140124, end: 20140301
  36. NIZORAL [Concomitant]
     Active Substance: KETOCONAZOLE
     Route: 061
     Dates: start: 20140401
  37. IMURAN [Concomitant]
     Active Substance: AZATHIOPRINE
     Indication: COLITIS ULCERATIVE
     Route: 048
     Dates: start: 20120628, end: 20140408
  38. PROGRAF [Suspect]
     Active Substance: TACROLIMUS\TACROLIMUS ANHYDROUS
     Indication: COLITIS ULCERATIVE
     Route: 048
     Dates: start: 20140414, end: 20140502
  39. PROGRAF [Suspect]
     Active Substance: TACROLIMUS\TACROLIMUS ANHYDROUS
     Indication: COLITIS ULCERATIVE
     Route: 048
     Dates: start: 20140329, end: 20140401
  40. AMLODIPINE [Concomitant]
     Active Substance: AMLODIPINE BESYLATE
     Indication: HYPERTENSION
     Route: 048
     Dates: start: 20140124, end: 20140124
  41. KENEI G (GLYCERIN) [Concomitant]
     Indication: COLONOSCOPY
     Route: 054
     Dates: start: 20140131, end: 20140131
  42. TERBINAFINE HYDROCHLORIDE. [Concomitant]
     Active Substance: TERBINAFINE HYDROCHLORIDE
     Route: 061
     Dates: end: 20140331
  43. ASACOL [Concomitant]
     Active Substance: MESALAMINE
     Indication: COLITIS ULCERATIVE
     Route: 048
     Dates: start: 20121121
  44. PL GRANULE [Concomitant]
     Route: 048
     Dates: start: 20140417, end: 20140430
  45. ZOVIRAX [Concomitant]
     Active Substance: ACYCLOVIR
     Indication: OPHTHALMIC HERPES SIMPLEX
     Route: 047
     Dates: start: 20140430, end: 20140514
  46. BUSCOPAN [Concomitant]
     Active Substance: BUTYLSCOPOLAMINE BROMIDE
     Route: 048
     Dates: start: 20140503, end: 20140503
  47. PROGRAF [Suspect]
     Active Substance: TACROLIMUS\TACROLIMUS ANHYDROUS
     Indication: COLITIS ULCERATIVE
     Route: 048
     Dates: start: 20140409, end: 20140413
  48. PROGRAF [Suspect]
     Active Substance: TACROLIMUS\TACROLIMUS ANHYDROUS
     Indication: COLITIS ULCERATIVE
     Route: 048
     Dates: start: 20140502
  49. UNISIA [Concomitant]
     Active Substance: AMLODIPINE BESYLATE\CANDESARTAN CILEXETIL
     Route: 048
     Dates: end: 20140123
  50. CRESTOR [Concomitant]
     Active Substance: ROSUVASTATIN CALCIUM
     Indication: HYPERLIPIDAEMIA
     Route: 048
     Dates: start: 20100511
  51. LOXONIN [Concomitant]
     Active Substance: LOXOPROFEN SODIUM
     Route: 048
     Dates: start: 20131223, end: 20131225
  52. VITAMEDIN [Concomitant]
     Active Substance: CYANOCOBALAMIN\PYRIDOXINE HYDROCHLORIDE\THIAMINE
     Indication: TRANSFUSION
     Route: 041
     Dates: start: 20140308, end: 20140318
  53. MOHRUS TAPE [Concomitant]
     Active Substance: KETOPROFEN
     Route: 062
     Dates: start: 20140311, end: 20140314
  54. MEIACT [Concomitant]
     Active Substance: CEFDITOREN PIVOXIL
     Route: 048
     Dates: start: 20140426, end: 20140429
  55. FELBINAC [Concomitant]
     Active Substance: FELBINAC
     Route: 062
     Dates: start: 20140505, end: 20140509

REACTIONS (2)
  - Herpes zoster [Recovered/Resolved]
  - Colitis ulcerative [Recovered/Resolved]

NARRATIVE: CASE EVENT DATE: 20140221
